FAERS Safety Report 8521203-0 (Version None)
Quarter: 2012Q3

REPORT INFORMATION
  Report Type: 
  Country: None (occurrence: None)
  Receive Date: 20120719
  Receipt Date: 20120713
  Transmission Date: 20120928
  Serious: Yes (Death)
  Sender: FDA-Public Use
  Company Number: US-PFIZER INC-2012169199

PATIENT
  Sex: Female

DRUGS (1)
  1. REVATIO [Suspect]
     Indication: PULMONARY HYPERTENSION
     Dosage: 20 MG, 2 TABS 3X/DAY
     Dates: start: 20100803

REACTIONS (3)
  - DISEASE PROGRESSION [None]
  - INFECTION [None]
  - CARDIAC FAILURE [None]
